FAERS Safety Report 4596676-9 (Version None)
Quarter: 2005Q1

REPORT INFORMATION
  Report Type: 
  Country: None (occurrence: None)
  Receive Date: 20050228
  Receipt Date: 20050214
  Transmission Date: 20050727
  Serious: Yes (Other)
  Sender: FDA-Public Use
  Company Number: 2005017733

PATIENT
  Age: 19 Year
  Sex: Female
  Weight: 81.1939 kg

DRUGS (2)
  1. DEPO-PROVERA [Suspect]
     Indication: CONTRACEPTION
     Dosage: 150 MG (150 MG, 1ST INJECTION;  EVERY 3 MONTHS), INTRAMUSCULAR
     Route: 030
     Dates: start: 20041109, end: 20041109
  2. FLAGYL [Concomitant]

REACTIONS (3)
  - ABORTION MISSED [None]
  - PREGNANCY WITH INJECTABLE CONTRACEPTIVE [None]
  - TRICHOMONIASIS [None]
